FAERS Safety Report 4900812-1 (Version None)
Quarter: 2006Q1

REPORT INFORMATION
  Report Type: 
  Country: None (occurrence: None)
  Receive Date: 20060201
  Receipt Date: 20060113
  Transmission Date: 20060701
  Serious: Yes (Hospitalization)
  Sender: FDA-Public Use
  Company Number: DE200601002223

PATIENT
  Age: 70 Year
  Sex: Female

DRUGS (6)
  1. FORTEO [Suspect]
     Indication: OSTEOPOROTIC FRACTURE
     Dosage: 20 UG, DAILY (1/D), UNK
     Dates: start: 20051109
  2. FORTEO [Concomitant]
  3. DOCITON (PROPRANOLOL HYDROCHLORIDE) [Concomitant]
  4. DELIX PLUS (HYDROCHLOROTHIAZIDE, RAMIPRIL) [Concomitant]
  5. MIRTAZAPINE [Concomitant]
  6. DUROGESIC   /DEN/(FENTANYL) [Concomitant]

REACTIONS (2)
  - CEREBROVASCULAR ACCIDENT [None]
  - RESTLESSNESS [None]
